FAERS Safety Report 10270935 (Version 1)
Quarter: 2014Q1

REPORT INFORMATION
  Report Type: Spontaneous
  Country: US (occurrence: None)
  Receive Date: 20140306
  Receipt Date: 20140306
  Transmission Date: 20141002
  Serious: Yes (Hospitalization)
  Sender: FDA-Public Use
  Company Number: 163-21880-13082362

PATIENT
  Age: 65 Year
  Sex: Male
  Weight: 117.9 kg

DRUGS (3)
  1. REVLIMID ( LENALIDOMIDE) (15  MILLIGRAM, CAPSULES) [Suspect]
     Indication: PLASMA CELL MYELOMA
     Dosage: 15 MG, 1 IN 1 D, PO
     Route: 048
     Dates: start: 20120813
  2. ASPIRIN ( ACETYLSALICYLIC ACID) (ENTERIC-COATED TABLET) [Concomitant]
  3. BENADRYL ( DIPHENHYDRAMINE HYDROCHLORIDE) (UNKNOWN) [Concomitant]

REACTIONS (1)
  - Pneumonia [None]
